FAERS Safety Report 25293670 (Version 1)
Quarter: 2025Q2

REPORT INFORMATION
  Report Type: Spontaneous
  Country: US (occurrence: US)
  Receive Date: 20250510
  Receipt Date: 20250510
  Transmission Date: 20250716
  Serious: No
  Sender: SANOFI AVENTIS
  Company Number: US-SA-2025SA127791

PATIENT
  Age: 56 Year
  Sex: Female

DRUGS (3)
  1. ARAVA [Suspect]
     Active Substance: LEFLUNOMIDE
     Route: 048
  2. METHOTREXATE [Suspect]
     Active Substance: METHOTREXATE
  3. XELJANZ XR [Concomitant]
     Active Substance: TOFACITINIB CITRATE
     Route: 048

REACTIONS (4)
  - White blood cell count decreased [Unknown]
  - Asthenia [Unknown]
  - Headache [Unknown]
  - Drug ineffective [Unknown]
